FAERS Safety Report 10774531 (Version 1)
Quarter: 2015Q1

REPORT INFORMATION
  Report Type: Spontaneous
  Country: US (occurrence: US)
  Receive Date: 20150209
  Receipt Date: 20150209
  Transmission Date: 20150721
  Serious: No
  Sender: FDA-Public Use
  Company Number: US-ASTRAZENECA-2015SE10100

PATIENT
  Sex: Female
  Weight: 116.6 kg

DRUGS (3)
  1. PROPOFOL. [Suspect]
     Active Substance: PROPOFOL
     Route: 042
  2. BYDUREON [Suspect]
     Active Substance: EXENATIDE
     Indication: TYPE 2 DIABETES MELLITUS
     Route: 058
     Dates: start: 20141214
  3. LISINOPRIL. [Suspect]
     Active Substance: LISINOPRIL
     Route: 048

REACTIONS (5)
  - Injection site reaction [Unknown]
  - Injection site pruritus [Recovering/Resolving]
  - Cough [Unknown]
  - Drug hypersensitivity [Unknown]
  - Injection site urticaria [Recovering/Resolving]
